FAERS Safety Report 7409644-6 (Version None)
Quarter: 2011Q2

REPORT INFORMATION
  Report Type: 
  Country: None (occurrence: None)
  Receive Date: 20110412
  Receipt Date: 20110207
  Transmission Date: 20111010
  Serious: Yes (Disabling)
  Sender: FDA-Public Use
  Company Number: PHHY2010US83362

PATIENT
  Sex: Male
  Weight: 84.354 kg

DRUGS (2)
  1. ALLOPURINOL [Concomitant]
     Indication: GOUT
     Dosage: 200 MG, UNK
     Route: 048
     Dates: start: 19790201
  2. DIOVAN [Suspect]
     Indication: BLOOD PRESSURE INCREASED
     Dosage: 325 MG, UNK
     Route: 048
     Dates: start: 20090310

REACTIONS (3)
  - ERECTILE DYSFUNCTION [None]
  - ASTHENIA [None]
  - SLUGGISHNESS [None]
